FAERS Safety Report 5551620-2 (Version None)
Quarter: 2007Q4

REPORT INFORMATION
  Report Type: 
  Country: None (occurrence: None)
  Receive Date: 20071129
  Receipt Date: 20070906
  Transmission Date: 20080405
  Serious: Yes (Hospitalization)
  Sender: FDA-Public Use
  Company Number: US200606002838

PATIENT
  Age: 42 Year
  Sex: Female
  Weight: 93.4 kg

DRUGS (14)
  1. ZYPREXA [Suspect]
     Dosage: 5 MG, 7.5 MG, 15 MG, 20 MG
     Dates: start: 19980101, end: 20050101
  2. ZYPREXA [Suspect]
     Dosage: 5 MG, 7.5 MG, 15 MG, 20 MG
     Dates: start: 19980101, end: 20050101
  3. ZYPREXA [Suspect]
     Dosage: 5 MG, 7.5 MG, 15 MG, 20 MG
     Dates: start: 19980101, end: 20050101
  4. ZYPREXA [Suspect]
     Dosage: 5 MG, 7.5 MG, 15 MG, 20 MG
     Dates: start: 19980101, end: 20050101
  5. RISPERDAL [Concomitant]
  6. RISPERDAL CONSTA [Concomitant]
  7. HALOPERIDOL DECANOATE                   (HALOPERIDOL DACANOATE) [Concomitant]
  8. DEPAKOTE [Concomitant]
  9. ALREX                 (LOTEPREDNOL ETABONATE) [Concomitant]
  10. FLUOROMETHOLONE               (FLUOROMETHOLONE) [Concomitant]
  11. MICROZIDE [Concomitant]
  12. ATIVAN [Concomitant]
  13. COGENTIN [Concomitant]
  14. GEODON [Concomitant]

REACTIONS (3)
  - HYPOGLYCAEMIA [None]
  - METABOLIC DISORDER [None]
  - TYPE 2 DIABETES MELLITUS [None]
